FAERS Safety Report 23317846 (Version 1)
Quarter: 2023Q4

REPORT INFORMATION
  Report Type: Spontaneous
  Country: US (occurrence: None)
  Receive Date: 20231219
  Receipt Date: 20231219
  Transmission Date: 20240109
  Serious: No
  Sender: FDA-Public Use
  Company Number: US-ROCHE-3400131

PATIENT
  Age: 74 Year
  Sex: Male
  Weight: 174 kg

DRUGS (1)
  1. GAZYVA [Suspect]
     Active Substance: OBINUTUZUMAB
     Indication: Chronic lymphocytic leukaemia
     Dosage: 100MG DAY 1, 900MG DAY 2, 1000MG DAY 8 AND 15 EVERY 21 DAYS
     Route: 042
     Dates: start: 20230802

REACTIONS (2)
  - Dizziness [Recovered/Resolved]
  - Blood pressure increased [Recovered/Resolved]

NARRATIVE: CASE EVENT DATE: 20230802
